FAERS Safety Report 9911246 (Version 1)
Quarter: 2014Q1

REPORT INFORMATION
  Report Type: Spontaneous
  Country: GB (occurrence: GB)
  Receive Date: 20140219
  Receipt Date: 20140219
  Transmission Date: 20141002
  Serious: Yes (Death, Other)
  Sender: FDA-Public Use
  Company Number: GB-B.I. PHARMACEUTICALS,INC./RIDGEFIELD-2014-BI-06663GD

PATIENT
  Age: 5 Decade
  Sex: Male

DRUGS (3)
  1. NEVIRAPINE [Suspect]
     Indication: HIV INFECTION
     Dosage: 400 MG
  2. KIVEXA [Suspect]
     Indication: HIV INFECTION
     Dosage: ABACAVIR 600 MG AND LAMIVUDINE 300 MG
  3. FLUPHENAZINE [Suspect]
     Indication: SCHIZOPHRENIA
     Dosage: 1.6667 MG

REACTIONS (5)
  - Paraneoplastic pemphigus [Fatal]
  - Sepsis [Fatal]
  - B-cell lymphoma [Unknown]
  - Toxic epidermal necrolysis [Unknown]
  - Drug eruption [Unknown]
